FAERS Safety Report 8854289 (Version 1)
Quarter: 2012Q4

REPORT INFORMATION
  Report Type: 
  Country: DE (occurrence: DE)
  Receive Date: 20121023
  Receipt Date: 20121023
  Transmission Date: 20130627
  Serious: Yes (Other)
  Sender: FDA-Public Use
  Company Number: DE-PFIZER INC-2012260379

PATIENT
  Age: 80 Year
  Sex: Male

DRUGS (2)
  1. LYRICA [Suspect]
     Dosage: 1 DF, single
     Dates: start: 20121018
  2. CARBAMAZEPINE [Concomitant]
     Dosage: 1 DF, single
     Dates: start: 20121018

REACTIONS (1)
  - Epilepsy [Unknown]
